FAERS Safety Report 11435473 (Version 1)
Quarter: 2015Q3

REPORT INFORMATION
  Report Type: Spontaneous
  Country: US (occurrence: US)
  Receive Date: 20150821
  Receipt Date: 20150821
  Transmission Date: 20151125
  Serious: No
  Sender: FDA-Public Use
  Company Number: US-ELI_LILLY_AND_COMPANY-US201310002605

PATIENT
  Age: 60 Year
  Sex: Male

DRUGS (1)
  1. CIALIS [Suspect]
     Active Substance: TADALAFIL
     Dosage: 20 MG, PRN
     Dates: start: 2011

REACTIONS (5)
  - Rhinorrhoea [Unknown]
  - Intentional product misuse [Unknown]
  - Nasal congestion [Unknown]
  - Headache [Unknown]
  - Nasopharyngitis [Unknown]
